FAERS Safety Report 6456478-5 (Version None)
Quarter: 2009Q4

REPORT INFORMATION
  Report Type: 
  Country: None (occurrence: None)
  Receive Date: 20091125
  Receipt Date: 20091117
  Transmission Date: 20100525
  Serious: Yes (Other)
  Sender: FDA-Public Use
  Company Number: US-AMGEN-QUU375203

PATIENT
  Sex: Female

DRUGS (1)
  1. ENBREL [Suspect]
     Indication: PSORIATIC ARTHROPATHY
     Route: 058
     Dates: start: 20020101

REACTIONS (6)
  - CLAVICLE FRACTURE [None]
  - DIZZINESS [None]
  - FALL [None]
  - GASTRIC INFECTION [None]
  - IN VITRO FERTILISATION [None]
  - INJECTION SITE PAIN [None]
